FAERS Safety Report 14244064 (Version 2)
Quarter: 2019Q4

REPORT INFORMATION
  Report Type: Report from Study
  Country: US (occurrence: US)
  Receive Date: 20171201
  Receipt Date: 20191007
  Transmission Date: 20200122
  Serious: Yes (Death, Hospitalization)
  Sender: FDA-Public Use
  Company Number: US-ASTRAZENECA-2017SE79500

PATIENT
  Age: 13628 Day
  Sex: Female
  Weight: 65 kg

DRUGS (6)
  1. LORAZEPAM. [Concomitant]
     Active Substance: LORAZEPAM
     Route: 065
     Dates: start: 20170626
  2. OXYCODONE [Concomitant]
     Active Substance: OXYCODONE
     Route: 065
     Dates: start: 20160817
  3. ADXS11-001 [Suspect]
     Active Substance: INVESTIGATIONAL PRODUCT
     Indication: CERVIX CARCINOMA
     Dosage: 1X10*9 CFU, DAILY DOSE,
     Route: 042
     Dates: start: 20170622, end: 20170718
  4. BACTRIM [Concomitant]
     Active Substance: SULFAMETHOXAZOLE\TRIMETHOPRIM
     Route: 065
     Dates: start: 20170623
  5. MEDI4736 [Suspect]
     Active Substance: DURVALUMAB
     Indication: CERVIX CARCINOMA
     Route: 042
     Dates: start: 20170722, end: 20170722
  6. ADXS11-001 [Suspect]
     Active Substance: INVESTIGATIONAL PRODUCT
     Indication: CERVIX CARCINOMA
     Dosage: 0.53 ML MILLILITRE(S), DAILY DOSE,
     Route: 042
     Dates: start: 20170718, end: 20170725

REACTIONS (2)
  - Disease progression [Fatal]
  - Pneumonia [Recovered/Resolved]

NARRATIVE: CASE EVENT DATE: 20170725
